FAERS Safety Report 12116352 (Version 1)
Quarter: 2016Q1

REPORT INFORMATION
  Report Type: Spontaneous
  Country: US (occurrence: US)
  Receive Date: 20160225
  Receipt Date: 20160225
  Transmission Date: 20160526
  Serious: No
  Sender: FDA-Public Use
  Company Number: US-TARO-2015TAR00565

PATIENT
  Age: 78 Year
  Sex: Female
  Weight: 54.42 kg

DRUGS (5)
  1. LAMOTRIGINE TABLETS 200 MG [Suspect]
     Active Substance: LAMOTRIGINE
     Indication: DEPRESSION
     Dosage: 200 MG, 1X/DAY
     Route: 048
     Dates: start: 2008, end: 2015
  2. FAMOTIDINE. [Concomitant]
     Active Substance: FAMOTIDINE
     Dosage: UNK
  3. XANAX [Concomitant]
     Active Substance: ALPRAZOLAM
     Dosage: UNK
  4. LISINOPRIL. [Concomitant]
     Active Substance: LISINOPRIL
     Dosage: UNK
  5. SEROQUEL [Concomitant]
     Active Substance: QUETIAPINE FUMARATE
     Dosage: UNK

REACTIONS (11)
  - Nausea [Recovering/Resolving]
  - Drug withdrawal syndrome [Recovering/Resolving]
  - Dyspnoea [Recovering/Resolving]
  - Agitation [Recovering/Resolving]
  - Balance disorder [Recovering/Resolving]
  - Ear congestion [Recovering/Resolving]
  - Headache [Recovering/Resolving]
  - Confusional state [Recovering/Resolving]
  - Nervousness [Recovering/Resolving]
  - Eye infection [Recovering/Resolving]
  - Chest pain [Recovering/Resolving]

NARRATIVE: CASE EVENT DATE: 201506
